FAERS Safety Report 12675689 (Version 1)
Quarter: 2016Q3

REPORT INFORMATION
  Report Type: Spontaneous
  Country: US (occurrence: US)
  Receive Date: 20160823
  Receipt Date: 20160823
  Transmission Date: 20161109
  Serious: No
  Sender: FDA-Public Use
  Company Number: US-JAZZ-2016-US-006507

PATIENT
  Sex: Female

DRUGS (11)
  1. XYREM [Suspect]
     Active Substance: SODIUM OXYBATE
     Dosage: UNKNOWN DOSE
     Route: 048
  2. SYNTHROID [Concomitant]
     Active Substance: LEVOTHYROXINE SODIUM
  3. NAPROSYN [Concomitant]
     Active Substance: NAPROXEN
  4. IBUPROFEN. [Concomitant]
     Active Substance: IBUPROFEN
  5. NUVARING [Concomitant]
     Active Substance: ETHINYL ESTRADIOL\ETONOGESTREL
  6. XYREM [Suspect]
     Active Substance: SODIUM OXYBATE
     Indication: CATAPLEXY
     Dosage: DOSE ADJUSTMENTS
     Route: 048
  7. NITROFURANTOIN MCR [Concomitant]
  8. CAMBIA [Concomitant]
     Active Substance: DICLOFENAC POTASSIUM
  9. XYREM [Suspect]
     Active Substance: SODIUM OXYBATE
     Indication: NARCOLEPSY
     Dosage: 2.25 G, BID
     Route: 048
     Dates: start: 201503, end: 201503
  10. NUVIGIL [Concomitant]
     Active Substance: ARMODAFINIL
  11. PROVIGIL [Concomitant]
     Active Substance: MODAFINIL

REACTIONS (2)
  - Intentional overdose [Unknown]
  - Prescribed overdose [Unknown]
